FAERS Safety Report 11431559 (Version 2)
Quarter: 2015Q4

REPORT INFORMATION
  Report Type: Spontaneous
  Country: DE (occurrence: DE)
  Receive Date: 20150828
  Receipt Date: 20151005
  Transmission Date: 20160304
  Serious: No
  Sender: FDA-Public Use
  Company Number: DE-SA-2015SA128326

PATIENT
  Age: 61 Year
  Sex: Female

DRUGS (7)
  1. METHIONINE [Concomitant]
     Active Substance: METHIONINE
     Indication: URINARY TRACT INFECTION
     Dosage: FOR 1 YEAR
     Route: 048
  2. LEMTRADA [Suspect]
     Active Substance: ALEMTUZUMAB
     Indication: RELAPSING-REMITTING MULTIPLE SCLEROSIS
     Route: 065
     Dates: start: 201405
  3. BACLOFEN. [Concomitant]
     Active Substance: BACLOFEN
     Indication: MUSCLE SPASTICITY
     Dosage: FOR YEARS; FREQUENCY: 3X1/2
     Route: 048
  4. PRAMIPEXOL [Concomitant]
     Active Substance: PRAMIPEXOLE
     Indication: RESTLESS LEGS SYNDROME
     Dosage: DOSE 0.18; FREQUENCY: 3X1/2 FOR YEARS
     Route: 048
  5. LEMTRADA [Suspect]
     Active Substance: ALEMTUZUMAB
     Indication: RELAPSING-REMITTING MULTIPLE SCLEROSIS
     Route: 041
     Dates: start: 20150518, end: 20150520
  6. LYRICA [Concomitant]
     Active Substance: PREGABALIN
     Indication: PARAESTHESIA
     Dosage: FOR YEARS; DOSE: 75 (UNITS NOT REPORTED)
     Route: 048
  7. TIZANIDINE. [Concomitant]
     Active Substance: TIZANIDINE
     Indication: MUSCLE SPASTICITY
     Dosage: FOR YEARS; FREQUENCY:2X1/2
     Route: 048

REACTIONS (2)
  - Gait disturbance [Recovered/Resolved]
  - Iritis [Recovering/Resolving]

NARRATIVE: CASE EVENT DATE: 2015
